FAERS Safety Report 14739610 (Version 1)
Quarter: 2018Q2

REPORT INFORMATION
  Report Type: Spontaneous
  Country: US (occurrence: US)
  Receive Date: 20180410
  Receipt Date: 20180410
  Transmission Date: 20180711
  Serious: No
  Sender: FDA-Public Use
  Company Number: US-TEVA-2018-US-878558

PATIENT
  Age: 76 Year
  Sex: Male
  Weight: 100 kg

DRUGS (2)
  1. AUSTEDO [Suspect]
     Active Substance: DEUTETRABENAZINE
     Indication: CHOREA
     Dosage: 24 MILLIGRAM DAILY;
     Route: 065
     Dates: start: 201802
  2. AUSTEDO [Suspect]
     Active Substance: DEUTETRABENAZINE
     Dosage: STARTED THERAPY ON FEB-2018.
     Route: 065
     Dates: start: 201802

REACTIONS (7)
  - Dry mouth [Recovered/Resolved]
  - Tremor [Recovered/Resolved]
  - Impaired work ability [Recovered/Resolved]
  - Drug ineffective [Unknown]
  - Stress [Recovered/Resolved]
  - Sputum abnormal [Recovered/Resolved]
  - Sensation of foreign body [Recovered/Resolved]
